FAERS Safety Report 10421977 (Version 1)
Quarter: 2014Q3

REPORT INFORMATION
  Report Type: Spontaneous
  Country: CM (occurrence: CM)
  Receive Date: 20140901
  Receipt Date: 20140901
  Transmission Date: 20150326
  Serious: Yes (Hospitalization)
  Sender: FDA-Public Use
  Company Number: CM-AUROBINDO-AUR-APL-2014-09186

PATIENT
  Age: 30 Year
  Sex: Male
  Weight: 65 kg

DRUGS (6)
  1. ZIDOVUDINE. [Suspect]
     Active Substance: ZIDOVUDINE
     Indication: RETROVIRAL INFECTION
     Dosage: UNK
     Route: 065
     Dates: start: 20130119
  2. SULFAMETHOXAZOLE AND TRIMETHOPRIM [Suspect]
     Active Substance: SULFAMETHOXAZOLE\TRIMETHOPRIM
     Indication: ANTIBIOTIC THERAPY
     Dosage: 960 MG, DAILY
     Route: 065
     Dates: start: 20130119
  3. CLARITHROMYCIN. [Suspect]
     Active Substance: CLARITHROMYCIN
     Indication: MYCOBACTERIUM ULCERANS INFECTION
     Dosage: 500 MG, TWO TIMES A DAY
     Route: 048
     Dates: end: 20130303
  4. RIFAMPICIN [Suspect]
     Active Substance: RIFAMPIN
     Indication: MYCOBACTERIUM ULCERANS INFECTION
     Dosage: 600 MG, DAILY
     Route: 048
     Dates: start: 20130109, end: 20130303
  5. EFAVIRENZ [Suspect]
     Active Substance: EFAVIRENZ
     Indication: RETROVIRAL INFECTION
     Dosage: UNK
     Route: 065
     Dates: start: 20130119
  6. LAMIVUDINE. [Suspect]
     Active Substance: LAMIVUDINE
     Indication: RETROVIRAL INFECTION
     Dosage: UNK
     Route: 065
     Dates: start: 20130119

REACTIONS (1)
  - Paradoxical drug reaction [Recovered/Resolved]
